FAERS Safety Report 14333396 (Version 3)
Quarter: 2018Q4

REPORT INFORMATION
  Report Type: Spontaneous
  Country: US (occurrence: US)
  Receive Date: 20171228
  Receipt Date: 20181107
  Transmission Date: 20190204
  Serious: Yes (Other)
  Sender: FDA-Public Use
  Company Number: US-DSJP-DSU-2017-143049

PATIENT

DRUGS (4)
  1. BENICAR [Suspect]
     Active Substance: OLMESARTAN MEDOXOMIL
     Indication: PRODUCT USED FOR UNKNOWN INDICATION
     Dosage: 20 MG, QD
     Dates: start: 2003, end: 2015
  2. MESALAMINE. [Suspect]
     Active Substance: MESALAMINE
     Dosage: UNK, BID
     Route: 054
     Dates: end: 2014
  3. MESALAMINE. [Suspect]
     Active Substance: MESALAMINE
     Dosage: UNK, QD
     Route: 054
     Dates: end: 2014
  4. MESALAMINE. [Suspect]
     Active Substance: MESALAMINE
     Indication: COLITIS ULCERATIVE
     Dosage: UNK, QD
     Route: 054
     Dates: end: 2014

REACTIONS (8)
  - Gastric ulcer [Unknown]
  - Haemorrhoids [Unknown]
  - Large intestine polyp [Unknown]
  - Abdominal wall haemorrhage [Recovered/Resolved]
  - Hiatus hernia [Not Recovered/Not Resolved]
  - Sprue-like enteropathy [Not Recovered/Not Resolved]
  - Diverticulum intestinal [Not Recovered/Not Resolved]
  - Proctitis ulcerative [Recovering/Resolving]

NARRATIVE: CASE EVENT DATE: 20030831
